FAERS Safety Report 9633907 (Version 2)
Quarter: 2013Q4

REPORT INFORMATION
  Report Type: Spontaneous
  Country: US (occurrence: US)
  Receive Date: 20131021
  Receipt Date: 20131029
  Transmission Date: 20140711
  Serious: No
  Sender: FDA-Public Use
  Company Number: US-JNJFOC-20131005224

PATIENT
  Sex: Female

DRUGS (3)
  1. INVEGA SUSTENNA [Suspect]
     Indication: PRODUCT USED FOR UNKNOWN INDICATION
     Route: 030
     Dates: start: 2011
  2. INVEGA [Suspect]
     Indication: PRODUCT USED FOR UNKNOWN INDICATION
     Route: 048
     Dates: start: 2011
  3. TOPIRAMATE [Suspect]
     Indication: PRODUCT USED FOR UNKNOWN INDICATION
     Route: 048

REACTIONS (9)
  - Pyrexia [Not Recovered/Not Resolved]
  - Dyskinesia [Not Recovered/Not Resolved]
  - Fatigue [Not Recovered/Not Resolved]
  - Dysphagia [Not Recovered/Not Resolved]
  - Restlessness [Not Recovered/Not Resolved]
  - Headache [Not Recovered/Not Resolved]
  - Hypersomnia [Not Recovered/Not Resolved]
  - Abdominal pain [Not Recovered/Not Resolved]
  - Dizziness [Not Recovered/Not Resolved]
